FAERS Safety Report 20732996 (Version 1)
Quarter: 2022Q2

REPORT INFORMATION
  Report Type: Spontaneous
  Country: CN (occurrence: CN)
  Receive Date: 20220420
  Receipt Date: 20220420
  Transmission Date: 20220720
  Serious: Yes (Hospitalization)
  Sender: FDA-Public Use
  Company Number: CN-BAXTER-2022BAX008719

PATIENT
  Age: 48 Year
  Sex: Female
  Weight: 70 kg

DRUGS (7)
  1. CYCLOPHOSPHAMIDE [Suspect]
     Active Substance: CYCLOPHOSPHAMIDE
     Indication: Breast cancer female
     Dosage: CYCLOPHOSPHAMIDE FOR INJECTION 0.86G + SODIUM CHLORIDE INJECTION 100ML
     Route: 041
     Dates: start: 20220318, end: 20220318
  2. SODIUM CHLORIDE [Suspect]
     Active Substance: SODIUM CHLORIDE
     Indication: Medication dilution
     Dosage: EPIRUBICIN FOR INJECTION 130MG + SODIUM CHLORIDE INJECTION 100ML
     Route: 041
     Dates: start: 20220318, end: 20220318
  3. SODIUM CHLORIDE [Suspect]
     Active Substance: SODIUM CHLORIDE
     Dosage: CYCLOPHOSPHAMIDE FOR INJECTION 0.86G + SODIUM CHLORIDE INJECTION 100ML
     Route: 041
     Dates: start: 20220318, end: 20220318
  4. SODIUM CHLORIDE [Suspect]
     Active Substance: SODIUM CHLORIDE
     Dosage: PACLITAXEL FOR INJECTION 450MG + SODIUM CHLORIDE 100ML
     Route: 041
     Dates: start: 20220318, end: 20220318
  5. EPIRUBICIN HYDROCHLORIDE [Suspect]
     Active Substance: EPIRUBICIN HYDROCHLORIDE
     Indication: Breast cancer female
     Dosage: EPIRUBICIN FOR INJECTION 130MG + SODIUM CHLORIDE INJECTION 100ML
     Route: 041
     Dates: start: 20220318, end: 20220318
  6. PACLITAXEL [Suspect]
     Active Substance: PACLITAXEL
     Indication: Breast cancer female
     Dosage: (ALBUMIN-BINDING TYPE) PACLITAXEL FOR INJECTION 450MG + SODIUM CHLORIDE 100ML
     Route: 041
     Dates: start: 20220318, end: 20220318
  7. GRANULOCYTE COLONY-STIMULATING FACTOR NOS [Concomitant]
     Active Substance: GRANULOCYTE COLONY-STIMULATING FACTOR NOS
     Indication: Prophylaxis
     Route: 058

REACTIONS (1)
  - Myelosuppression [Recovered/Resolved]

NARRATIVE: CASE EVENT DATE: 20220330
